FAERS Safety Report 6443431-0 (Version None)
Quarter: 2009Q4

REPORT INFORMATION
  Report Type: 
  Country: None (occurrence: None)
  Receive Date: 20091117
  Receipt Date: 20091111
  Transmission Date: 20100525
  Serious: Yes (Hospitalization)
  Sender: FDA-Public Use
  Company Number: JP-PFIZER INC-2009291448

PATIENT
  Age: 86 Year
  Sex: Male

DRUGS (1)
  1. NORVASC [Suspect]
     Route: 048
     Dates: end: 20090901

REACTIONS (2)
  - ASCITES [None]
  - OEDEMA PERIPHERAL [None]
